FAERS Safety Report 18924630 (Version 1)
Quarter: 2021Q1

REPORT INFORMATION
  Report Type: Spontaneous
  Country: US (occurrence: US)
  Receive Date: 20210222
  Receipt Date: 20210222
  Transmission Date: 20210420
  Serious: No
  Sender: FDA-Public Use
  Company Number: US-TEVA-2019-US-1088174

PATIENT

DRUGS (1)
  1. PLIVA TEVA (FLUOXETINE) [Suspect]
     Active Substance: FLUOXETINE HYDROCHLORIDE
     Dosage: 60 MILLIGRAM DAILY; THREE 20MG CAPSULES OF FLUOXETINE EACH MORNING (60MG TOTAL DAILY).
     Route: 065

REACTIONS (3)
  - Reflux gastritis [Not Recovered/Not Resolved]
  - Product substitution issue [Unknown]
  - Dyspepsia [Not Recovered/Not Resolved]
